FAERS Safety Report 8563646-5 (Version None)
Quarter: 2012Q3

REPORT INFORMATION
  Report Type: 
  Country: None (occurrence: None)
  Receive Date: 20120803
  Receipt Date: 20120726
  Transmission Date: 20120928
  Serious: No
  Sender: FDA-Public Use
  Company Number: US-BIOGENIDEC-2012BI015644

PATIENT
  Age: 40 Year
  Sex: Male

DRUGS (1)
  1. TYSABRI [Suspect]
     Indication: MULTIPLE SCLEROSIS
     Route: 042
     Dates: start: 20091118, end: 20111201

REACTIONS (6)
  - MONOPLEGIA [None]
  - VISUAL IMPAIRMENT [None]
  - URINARY INCONTINENCE [None]
  - HYPOAESTHESIA [None]
  - BALANCE DISORDER [None]
  - ASTHENIA [None]
